FAERS Safety Report 12509128 (Version 1)
Quarter: 2016Q2

REPORT INFORMATION
  Report Type: Spontaneous
  Country: AU (occurrence: AU)
  Receive Date: 20160629
  Receipt Date: 20160629
  Transmission Date: 20160815
  Serious: Yes (Other)
  Sender: FDA-Public Use
  Company Number: AU-PFIZER INC-2016318392

PATIENT
  Age: 45 Year
  Sex: Female

DRUGS (3)
  1. ZOPICLONE [Interacting]
     Active Substance: ZOPICLONE
     Indication: STRESS
     Dosage: UNK (OCCASIONAL)
  2. ZOLPIDEM [Interacting]
     Active Substance: ZOLPIDEM\ZOLPIDEM TARTRATE
     Indication: STRESS
     Dosage: UNK
  3. VENLAFAXINE HCL [Suspect]
     Active Substance: VENLAFAXINE HYDROCHLORIDE
     Indication: ANTIDEPRESSANT THERAPY
     Dosage: UNK

REACTIONS (3)
  - Somnambulism [Unknown]
  - Drug interaction [Unknown]
  - Personality change [Unknown]
